FAERS Safety Report 9188442 (Version 1)
Quarter: 2012Q4

REPORT INFORMATION
  Report Type: 
  Country: US (occurrence: US)
  Receive Date: 20121205
  Receipt Date: 20121205
  Transmission Date: 20130627
  Serious: Yes (Other)
  Sender: FDA-Public Use
  Company Number: US-SANOFI-AVENTIS-2012SA086680

PATIENT
  Sex: Female

DRUGS (3)
  1. LANTUS SOLOSTAR [Suspect]
     Indication: TYPE 2 DIABETES MELLITUS
     Dosage: Dose:40 unit(s)
     Route: 058
  2. SOLOSTAR [Suspect]
     Indication: TYPE II DIABETES MELLITUS
  3. HUMALOG [Suspect]
     Route: 065

REACTIONS (5)
  - Osteitis deformans [Unknown]
  - Pain [Unknown]
  - Hearing impaired [Unknown]
  - Condition aggravated [Unknown]
  - Osteoporosis [Unknown]
